FAERS Safety Report 15546275 (Version 1)
Quarter: 2018Q4

REPORT INFORMATION
  Report Type: Spontaneous
  Country: US (occurrence: US)
  Receive Date: 20181024
  Receipt Date: 20181024
  Transmission Date: 20190205
  Serious: No
  Sender: FDA-Public Use
  Company Number: US-TEVA-2018-US-965178

PATIENT
  Sex: Male

DRUGS (2)
  1. ISONIATAB [Suspect]
     Active Substance: ISONIAZID
  2. ISONIATAB [Suspect]
     Active Substance: ISONIAZID
     Dosage: ONCE WEEKLY (DIAGNOSIS UNKNOWN).

REACTIONS (1)
  - Vomiting [Unknown]

NARRATIVE: CASE EVENT DATE: 201810
